FAERS Safety Report 10703879 (Version 1)
Quarter: 2015Q1

REPORT INFORMATION
  Report Type: Report from Study
  Country: AR (occurrence: AR)
  Receive Date: 20150112
  Receipt Date: 20150112
  Transmission Date: 20150721
  Serious: Yes (Death)
  Sender: FDA-Public Use
  Company Number: PHHY2015AR002465

PATIENT
  Sex: Female

DRUGS (1)
  1. EXFORGE [Suspect]
     Active Substance: AMLODIPINE BESYLATE\VALSARTAN
     Indication: HYPERTENSION
     Dosage: 1.5 DF, QD
     Route: 048

REACTIONS (3)
  - Breast cancer metastatic [Fatal]
  - Breast mass [Fatal]
  - Wrong technique in drug usage process [Unknown]
